FAERS Safety Report 12119726 (Version 1)
Quarter: 2016Q1

REPORT INFORMATION
  Report Type: Spontaneous
  Country: US (occurrence: None)
  Receive Date: 20160225
  Receipt Date: 20160225
  Transmission Date: 20160526
  Serious: Yes (Other)
  Sender: FDA-Public Use
  Company Number: None

PATIENT
  Age: 9 Year
  Sex: Female
  Weight: 31.75 kg

DRUGS (1)
  1. ATROPINE EYE DROPS .01 SHADY GROVE PHARMACY [Suspect]
     Active Substance: ATROPINE
     Indication: MYOPIA
     Dosage: 08/31/2015 .01 ONCE DAILY INTO THE EYE

REACTIONS (2)
  - Product quality issue [None]
  - Eyelid pain [None]

NARRATIVE: CASE EVENT DATE: 20150601
